FAERS Safety Report 7220929-9 (Version None)
Quarter: 2011Q1

REPORT INFORMATION
  Report Type: 
  Country: None (occurrence: None)
  Receive Date: 20110112
  Receipt Date: 20110103
  Transmission Date: 20110831
  Serious: Yes (Death, Hospitalization)
  Sender: FDA-Public Use
  Company Number: US-ELI_LILLY_AND_COMPANY-US201101000564

PATIENT
  Sex: Female

DRUGS (1)
  1. FORTEO [Suspect]
     Indication: OSTEOPOROSIS
     Dosage: 20 UG, DAILY (1/D)
     Route: 065
     Dates: start: 20091201

REACTIONS (5)
  - BRAIN NEOPLASM [None]
  - LUNG NEOPLASM MALIGNANT [None]
  - BIOPSY [None]
  - HOSPITALISATION [None]
  - HEPATIC NEOPLASM MALIGNANT [None]
